FAERS Safety Report 7700640-8 (Version None)
Quarter: 2011Q3

REPORT INFORMATION
  Report Type: 
  Country: None (occurrence: None)
  Receive Date: 20110822
  Receipt Date: 20110822
  Transmission Date: 20111222
  Serious: Yes (Hospitalization, Other)
  Sender: FDA-Public Use
  Company Number: None

PATIENT
  Age: 52 Year
  Sex: Female
  Weight: 86.182 kg

DRUGS (1)
  1. VIMOVO [Suspect]
     Indication: SKELETAL INJURY
     Dosage: 500MG/20MG
     Dates: start: 20110812, end: 20110814

REACTIONS (4)
  - DYSPNOEA [None]
  - BLOOD PRESSURE SYSTOLIC INCREASED [None]
  - CHEST PAIN [None]
  - PALPITATIONS [None]
